FAERS Safety Report 8988367 (Version 1)
Quarter: 2012Q4

REPORT INFORMATION
  Report Type: Spontaneous
  Country: US (occurrence: None)
  Receive Date: 20121220
  Receipt Date: 20121220
  Transmission Date: 20130627
  Serious: Yes (Life-Threatening)
  Sender: FDA-Public Use
  Company Number: None

PATIENT
  Sex: Male
  Weight: 7.71 kg

DRUGS (1)
  1. ZOLOFT [Suspect]
     Indication: DEPRESSION
     Dosage: 25 mg  Daily  po
     Route: 048
     Dates: start: 20080601, end: 20121218

REACTIONS (6)
  - Persistent foetal circulation [None]
  - Atrial septal defect [None]
  - Heart disease congenital [None]
  - Cardiomegaly [None]
  - Plagiocephaly [None]
  - Maternal drugs affecting foetus [None]
